FAERS Safety Report 24760274 (Version 1)
Quarter: 2024Q4

REPORT INFORMATION
  Report Type: Spontaneous
  Country: GB (occurrence: GB)
  Receive Date: 20241220
  Receipt Date: 20241220
  Transmission Date: 20250114
  Serious: Yes (Other)
  Sender: TEVA
  Company Number: None

PATIENT
  Age: 68 Year

DRUGS (15)
  1. MYCOPHENOLATE MOFETIL [Suspect]
     Active Substance: MYCOPHENOLATE MOFETIL
     Indication: Product used for unknown indication
     Dosage: MYCOPHENOLATE MOFETIL 500 MG TABLETS TWO TO BE TAKEN TWICE A DAY,
     Route: 065
  2. LINAGLIPTIN [Concomitant]
     Active Substance: LINAGLIPTIN
     Indication: Product used for unknown indication
     Dosage: LINAGLIPTIN 5 MG TABLETS ONE TO BE TAKEN EACH DAY
     Route: 065
  3. WARFARIN [Concomitant]
     Active Substance: WARFARIN
     Indication: Anticoagulant therapy
     Dosage: WARFARIN 1 MG TABLETS TAKE AS INSTRUCTED BY ANTICOAGULANT CLINIC WARFARIN 3 MG TABLETS TAKE AS IN...
     Route: 065
  4. MAGNESIUM [Concomitant]
     Active Substance: MAGNESIUM
     Indication: Arthralgia
     Dosage: OTC MAGNESIUM SUPPLEMENTS
     Route: 065
  5. hux-d3 [Concomitant]
     Indication: Product used for unknown indication
     Dosage: HUX-D3 + OTC VITAMIN D3 SUPPLEMENTS, HUX-D3 20,000 UNIT CAPSULES TAKE 1 CAPSULE ONCE A MONTH
     Route: 065
  6. FLUOXETINE [Concomitant]
     Active Substance: FLUOXETINE HYDROCHLORIDE
     Indication: Product used for unknown indication
     Dosage: FLUOXETINE 40 MG CAPSULES ONE TO BE TAKEN EACH DAY OTHER / OVER THE COUNTER (OTC)
     Route: 065
  7. ALFACALCIDOL [Concomitant]
     Active Substance: ALFACALCIDOL
     Indication: Product used for unknown indication
     Dosage: TIME INTERVAL: 0.33333333 WEEKS: ALFACALCIDOL 250 NANOGRAM CAPSULES TAKE ONE CAPSULE ON MONDAY-WE...
     Route: 065
  8. FAMOTIDINE [Concomitant]
     Active Substance: FAMOTIDINE
     Indication: Product used for unknown indication
     Dosage: FAMOTIDINE 20 MG TABLETS ONE TO BE TAKEN EACH DAY,
     Route: 065
  9. SIMVASTATIN [Concomitant]
     Active Substance: SIMVASTATIN
     Indication: Product used for unknown indication
     Dosage: SIMVASTATIN 40 MG TABLETS EVERY NIGHT (ON)
     Route: 065
  10. FUROSEMIDE [Concomitant]
     Active Substance: FUROSEMIDE
     Indication: Product used for unknown indication
     Dosage: FUROSEMIDE 40 MG TABLETS ONE TO BE TAKEN EACH MORNING AND ONE AT LUNCHTIME
     Route: 065
  11. SODIUM BICARBONATE [Concomitant]
     Active Substance: SODIUM BICARBONATE
     Indication: Product used for unknown indication
     Dosage: SODIUM BICARBONATE 500 MG CAPSULES TAKE FOUR, TWICE A DAY
     Route: 065
  12. ACETAMINOPHEN [Concomitant]
     Active Substance: ACETAMINOPHEN
     Indication: Arthralgia
  13. BISOPROLOL [Concomitant]
     Active Substance: BISOPROLOL
     Indication: Product used for unknown indication
     Dosage: REPEATS BISOPROLOL 5 MG TABLETS ONE TO BE TAKEN EACH DAY,
     Route: 065
  14. Multivitamin gummies [Concomitant]
     Indication: Arthralgia
     Dosage: OTC MULTIVITAMIN GUMMIES
     Route: 065
  15. FLUTICASONE [Concomitant]
     Active Substance: FLUTICASONE
     Indication: Product used for unknown indication
     Dosage: FLUTICASONE FUROATE 27.5 MICROGRAMS / DOSE NASAL SPRAY TWO SPRAYS TO BE USED IN EACH NOSTRIL ONCE...
     Route: 065

REACTIONS (1)
  - Cytomegalovirus colitis [Unknown]
